FAERS Safety Report 25062666 (Version 1)
Quarter: 2025Q1

REPORT INFORMATION
  Report Type: Report from Study
  Country: US (occurrence: US)
  Receive Date: 20250311
  Receipt Date: 20250311
  Transmission Date: 20250409
  Serious: Yes (Hospitalization, Other)
  Sender: GILEAD
  Company Number: US-GILEAD-2025-0706620

PATIENT
  Age: 54 Year
  Sex: Male

DRUGS (14)
  1. AZTREONAM LYSINE [Suspect]
     Active Substance: AZTREONAM LYSINE
     Indication: Cystic fibrosis
     Dosage: INHALE 1 VIAL (75MG) VIA NEBULIZER IN THE MORNING, AFTERNOON, EVENING FOR 28 DAYS ON, 28 DAYS OFF
     Route: 055
     Dates: start: 20150325
  2. ADVAIR HFA [Concomitant]
     Active Substance: FLUTICASONE PROPIONATE\SALMETEROL XINAFOATE
  3. ONDANSETRON [Concomitant]
     Active Substance: ONDANSETRON
  4. AZITHROMYCIN [Concomitant]
     Active Substance: AZITHROMYCIN
  5. BASAGLAR [Concomitant]
     Active Substance: INSULIN GLARGINE
  6. LOKELMA [Concomitant]
     Active Substance: SODIUM ZIRCONIUM CYCLOSILICATE
  7. IPRATROPIUM [Concomitant]
     Active Substance: IPRATROPIUM
  8. CARVEDILOL [Concomitant]
     Active Substance: CARVEDILOL
  9. CALCITRIOL [Concomitant]
     Active Substance: CALCITRIOL
  10. MONTELUKAST [Concomitant]
     Active Substance: MONTELUKAST
  11. PREDNISONE [Concomitant]
     Active Substance: PREDNISONE
  12. ALLOPURINOL [Concomitant]
     Active Substance: ALLOPURINOL
  13. PANTOPRAZOLE [Concomitant]
     Active Substance: PANTOPRAZOLE
  14. FUROSEMIDE [Concomitant]
     Active Substance: FUROSEMIDE

REACTIONS (3)
  - Cystic fibrosis respiratory infection suppression [Unknown]
  - Muscle spasms [Unknown]
  - Pain [Unknown]
